FAERS Safety Report 9798195 (Version 2)
Quarter: 2014Q1

REPORT INFORMATION
  Report Type: Report from Study
  Country: AU (occurrence: AU)
  Receive Date: 20140106
  Receipt Date: 20140110
  Transmission Date: 20141002
  Serious: Yes (Death, Hospitalization)
  Sender: FDA-Public Use
  Company Number: AU-ACTELION-A-CH2014-93263

PATIENT
  Age: 68 Year
  Sex: Female
  Weight: 64.6 kg

DRUGS (11)
  1. TRACLEER [Suspect]
     Indication: PULMONARY HYPERTENSION
     Dosage: 125 MG, BID
     Route: 048
     Dates: start: 20131112, end: 20131211
  2. TRACLEER [Suspect]
     Dosage: 62.5 MG, BID
     Route: 048
     Dates: start: 20131011, end: 20131111
  3. SILDENAFIL [Concomitant]
     Dosage: UNK
     Dates: start: 20130205
  4. WARFARIN [Concomitant]
     Dosage: UNK
     Dates: start: 20130707
  5. FUROSEMIDE [Concomitant]
     Dosage: UNK
     Dates: start: 20121222
  6. SPIRONOLACTONE [Concomitant]
     Dosage: UNK
     Dates: start: 20121222
  7. CARVIDOL [Concomitant]
     Dosage: UNK
     Dates: start: 20121222
  8. PREGABALIN [Concomitant]
     Dosage: UNK
     Dates: start: 20130418
  9. TARGIN [Concomitant]
     Dosage: UNK
     Dates: start: 20130517
  10. OXYNORM [Concomitant]
  11. HYDROCHLOROTHIAZIDE [Concomitant]
     Dosage: UNK
     Dates: start: 20130515

REACTIONS (2)
  - Right ventricular failure [Fatal]
  - Fluid overload [Fatal]
